FAERS Safety Report 8532205-2 (Version None)
Quarter: 2012Q3

REPORT INFORMATION
  Report Type: 
  Country: None (occurrence: None)
  Receive Date: 20120723
  Receipt Date: 20120718
  Transmission Date: 20120928
  Serious: Yes (Hospitalization)
  Sender: FDA-Public Use
  Company Number: US-ROCHE-1089611

PATIENT
  Sex: Female

DRUGS (2)
  1. MABTHERA [Suspect]
     Indication: WEGENER'S GRANULOMATOSIS
     Route: 042
     Dates: start: 20120621
  2. MABTHERA [Suspect]
     Route: 042
     Dates: start: 20120713

REACTIONS (4)
  - FATIGUE [None]
  - WRIST FRACTURE [None]
  - OROPHARYNGEAL PAIN [None]
  - FALL [None]
